FAERS Safety Report 12447475 (Version 1)
Quarter: 2016Q2

REPORT INFORMATION
  Report Type: Spontaneous
  Country: None (occurrence: None)
  Receive Date: 20160607
  Receipt Date: 20160607
  Transmission Date: 20160815
  Serious: Yes (Other)
  Sender: FDA-Public Use
  Company Number: None

PATIENT
  Sex: Female

DRUGS (1)
  1. WARFARIN, 7.5 MG TARO PHARM USA [Suspect]
     Active Substance: WARFARIN

REACTIONS (1)
  - Product colour issue [None]
